FAERS Safety Report 8513760-5 (Version None)
Quarter: 2012Q3

REPORT INFORMATION
  Report Type: 
  Country: None (occurrence: None)
  Receive Date: 20120705
  Receipt Date: 20120620
  Transmission Date: 20120928
  Serious: Yes (Death)
  Sender: FDA-Public Use
  Company Number: UTC-019420

PATIENT
  Age: 45 Year
  Sex: Male
  Weight: 77.73 kg

DRUGS (4)
  1. TYVASO [Suspect]
     Indication: COR PULMONALE CHRONIC
     Dosage: 18 TO 54 MICROGRAMS (4 IN 1 D), INHALATION
  2. TYVASO [Suspect]
     Indication: PULMONARY HYPERTENSION
     Dosage: 18 TO 54 MICROGRAMS (4 IN 1 D), INHALATION
  3. ADCIRCA [Concomitant]
  4. COUMADIN [Concomitant]

REACTIONS (1)
  - DEATH [None]
